FAERS Safety Report 4824994-5 (Version None)
Quarter: 2005Q4

REPORT INFORMATION
  Report Type: 
  Country: None (occurrence: None)
  Receive Date: 20051110
  Receipt Date: 20051005
  Transmission Date: 20060501
  Serious: Yes (Hospitalization)
  Sender: FDA-Public Use
  Company Number: 2005SE05687

PATIENT
  Age: 755 Month
  Sex: Female

DRUGS (9)
  1. NEXIUM [Suspect]
     Indication: DYSPEPSIA
     Route: 048
     Dates: end: 20050518
  2. PANTOPRAZOLE SODIUM [Suspect]
     Indication: DYSPEPSIA
     Dates: end: 20050419
  3. ERCOQUIN [Suspect]
     Dates: start: 20050518, end: 20050530
  4. ALPRAZOLAM [Concomitant]
  5. LIORESAL TABLETS 10 [Concomitant]
  6. MARINOL 2.5 [Concomitant]
  7. PREDNISOLONE [Concomitant]
     Dates: start: 20050505, end: 20050801
  8. SPASMOLYT [Concomitant]
  9. VITAMINS [Concomitant]

REACTIONS (3)
  - ALANINE AMINOTRANSFERASE INCREASED [None]
  - CUTANEOUS LUPUS ERYTHEMATOSUS [None]
  - LIVER DISORDER [None]
